FAERS Safety Report 6836668-X (Version None)
Quarter: 2010Q3

REPORT INFORMATION
  Report Type: 
  Country: None (occurrence: None)
  Receive Date: 20100713
  Receipt Date: 20100707
  Transmission Date: 20110219
  Serious: Yes (Hospitalization)
  Sender: FDA-Public Use
  Company Number: US-AMGEN-QUU422647

PATIENT
  Sex: Female

DRUGS (3)
  1. NPLATE [Suspect]
     Indication: IDIOPATHIC THROMBOCYTOPENIC PURPURA
     Dates: start: 20090316
  2. CORTICOSTEROIDS [Concomitant]
     Dates: start: 20060706
  3. IMMU-G [Concomitant]
     Route: 042

REACTIONS (1)
  - HOSPITALISATION [None]
